FAERS Safety Report 9411759 (Version 1)
Quarter: 2013Q3

REPORT INFORMATION
  Report Type: Spontaneous
  Country: US (occurrence: US)
  Receive Date: 20130722
  Receipt Date: 20130722
  Transmission Date: 20140515
  Serious: No
  Sender: FDA-Public Use
  Company Number: US-PFIZER INC-2013210439

PATIENT
  Age: 36 Year
  Sex: Male

DRUGS (1)
  1. CAMPTOSAR [Suspect]
     Indication: COLON CANCER
     Dosage: 334 MG, (334 MG EVERY 14 DAYS)
     Dates: start: 20110210

REACTIONS (2)
  - Disease progression [Unknown]
  - Colon cancer [Unknown]
